FAERS Safety Report 6601825-4 (Version None)
Quarter: 2010Q1

REPORT INFORMATION
  Report Type: 
  Country: None (occurrence: None)
  Receive Date: 20100218
  Receipt Date: 20100127
  Transmission Date: 20100710
  Serious: Yes (Hospitalization, Other)
  Sender: FDA-Public Use
  Company Number: 2010AC000093

PATIENT
  Age: 73 Year
  Sex: Female

DRUGS (28)
  1. DIGOXIN [Suspect]
     Dosage: 0.25 MG; QD; PO
     Route: 048
     Dates: start: 20080403
  2. ROCEPHIN [Concomitant]
  3. DACTRIUM [Concomitant]
  4. ZAROXOLYN [Concomitant]
  5. DIOVAN [Concomitant]
  6. RADIATIO [Concomitant]
  7. LASIX [Concomitant]
  8. POTASSIUM [Concomitant]
  9. SPIRIVA [Concomitant]
  10. ALBUTEROL SULATE [Concomitant]
  11. LANTUS [Concomitant]
  12. NOVOLOG [Concomitant]
  13. LIPITOR [Concomitant]
  14. CARTIA XT [Concomitant]
  15. ASPIRIN [Concomitant]
  16. METOLAZONE [Concomitant]
  17. CARVEDILOL [Concomitant]
  18. REVATIO [Concomitant]
  19. THEOPHYLLINE [Concomitant]
  20. IRON SULFATETHIAMIN COMPOUND TAB [Concomitant]
  21. AMLODIPINE BESYLATE [Concomitant]
  22. HUMULIN INSULIN [Concomitant]
  23. REZULIN [Concomitant]
  24. ACCURPRIL [Concomitant]
  25. PROPULSID [Concomitant]
  26. HYOSCYAMINE [Concomitant]
  27. NITROLINGUAL [Concomitant]
  28. KLOR-CON [Concomitant]

REACTIONS (12)
  - ABDOMINAL DISTENSION [None]
  - ABSCESS [None]
  - ASTHENIA [None]
  - CELLULITIS [None]
  - DYSPNOEA [None]
  - DYSPNOEA EXERTIONAL [None]
  - MULTIPLE INJURIES [None]
  - PAIN [None]
  - RENAL FAILURE [None]
  - THERAPEUTIC AGENT TOXICITY [None]
  - UNEVALUABLE EVENT [None]
  - WOUND [None]
